FAERS Safety Report 4407440-5 (Version None)
Quarter: 2004Q3

REPORT INFORMATION
  Report Type: 
  Country: None (occurrence: None)
  Receive Date: 20040723
  Receipt Date: 20040723
  Transmission Date: 20050211
  Serious: Yes (Other)
  Sender: FDA-Public Use
  Company Number: None

PATIENT
  Age: 60 Year
  Sex: Female
  Weight: 58.0604 kg

DRUGS (1)
  1. NEULASTA [Suspect]
     Dosage: 6MG D2 - SQ
     Route: 058
     Dates: start: 20040618

REACTIONS (3)
  - FEELING ABNORMAL [None]
  - FEELING HOT [None]
  - RASH [None]
